FAERS Safety Report 10466465 (Version 1)
Quarter: 2014Q3

REPORT INFORMATION
  Report Type: Spontaneous
  Country: US (occurrence: None)
  Receive Date: 20140919
  Receipt Date: 20140919
  Transmission Date: 20150326
  Serious: Yes (Hospitalization, Disabling)
  Sender: FDA-Public Use
  Company Number: None

PATIENT
  Age: 48 Year
  Sex: Female

DRUGS (1)
  1. KENALOG [Suspect]
     Active Substance: TRIAMCINOLONE ACETONIDE
     Indication: BACK DISORDER
     Dosage: 40, ONCE, INJECTED INTO SPINAL AREA
     Dates: start: 20100127

REACTIONS (25)
  - Asthenia [None]
  - Palpitations [None]
  - Pain in extremity [None]
  - Muscle tightness [None]
  - Gastric disorder [None]
  - Vomiting [None]
  - Fatigue [None]
  - Muscle spasms [None]
  - Myalgia [None]
  - Hypohidrosis [None]
  - Gastric pH decreased [None]
  - Tendon disorder [None]
  - Drug hypersensitivity [None]
  - Fluid retention [None]
  - Psychomotor hyperactivity [None]
  - Confusional state [None]
  - Fall [None]
  - Ear disorder [None]
  - Musculoskeletal stiffness [None]
  - Mass [None]
  - Peripheral swelling [None]
  - Insomnia [None]
  - Anxiety [None]
  - Blood sodium decreased [None]
  - Abnormal faeces [None]

NARRATIVE: CASE EVENT DATE: 20110127
